FAERS Safety Report 7691216-X (Version None)
Quarter: 2011Q3

REPORT INFORMATION
  Report Type: 
  Country: None (occurrence: None)
  Receive Date: 20110817
  Receipt Date: 20110817
  Transmission Date: 20111222
  Serious: No
  Sender: FDA-Public Use
  Company Number: None

PATIENT
  Age: 91 Year
  Sex: Male
  Weight: 99 kg

DRUGS (1)
  1. HEPARIN [Suspect]
     Indication: ATRIAL FIBRILLATION
     Dosage: 5000 IU BID SQ
     Route: 058
     Dates: start: 20110613, end: 20110615

REACTIONS (1)
  - HEPARIN-INDUCED THROMBOCYTOPENIA [None]
